FAERS Safety Report 20201858 (Version 1)
Quarter: 2021Q4

REPORT INFORMATION
  Report Type: Spontaneous
  Country: US (occurrence: US)
  Receive Date: 20211217
  Receipt Date: 20211217
  Transmission Date: 20220303
  Serious: Yes (Other)
  Sender: FDA-Public Use
  Company Number: US-ALLERGAN-2142601US

PATIENT
  Sex: Female
  Weight: 70.295 kg

DRUGS (9)
  1. BOTOX [Suspect]
     Active Substance: ONABOTULINUMTOXINA
     Indication: Hemiplegia
     Dosage: UNK UNK, SINGLE
  2. HYDROCODONE [Concomitant]
     Active Substance: HYDROCODONE
     Indication: Back injury
     Dosage: 1 DF, TID
  3. EZETIMIBE [Concomitant]
     Active Substance: EZETIMIBE
     Indication: Cholesterosis
     Dosage: 10 MG
  4. SERTRALINE [Concomitant]
     Active Substance: SERTRALINE HYDROCHLORIDE
     Indication: Antidepressant therapy
     Dosage: 50 MG
  5. CALCIUM [Concomitant]
     Active Substance: CALCIUM
     Dosage: 600 MG, BID
  6. MINERALS\VITAMINS [Concomitant]
     Active Substance: MINERALS\VITAMINS
     Indication: Eye disorder
     Dosage: UNK
  7. KRILL OIL OMEGA 3 [Concomitant]
     Dosage: 1000 MG, QD
  8. MULTIVITAMIN PROACTIVE 65+ [Concomitant]
     Indication: Vitamin supplementation
     Dosage: UNK, QD
  9. PROLIA [Concomitant]
     Active Substance: DENOSUMAB
     Indication: Osteoporosis
     Dosage: ONCE EVERY 6 MONTHS

REACTIONS (3)
  - Spinal operation [Recovered/Resolved]
  - Infection [Recovered/Resolved]
  - Wound [Recovered/Resolved]

NARRATIVE: CASE EVENT DATE: 20200909
